FAERS Safety Report 6477441-4 (Version None)
Quarter: 2009Q4

REPORT INFORMATION
  Report Type: 
  Country: None (occurrence: None)
  Receive Date: 20091207
  Receipt Date: 20091106
  Transmission Date: 20100525
  Serious: Yes (Death)
  Sender: FDA-Public Use
  Company Number: GB-SANOFI-AVENTIS-2009SA000661

PATIENT
  Sex: Male

DRUGS (4)
  1. TAXOTERE [Suspect]
     Indication: HEAD AND NECK CANCER
  2. CISPLATIN [Concomitant]
     Indication: HEAD AND NECK CANCER
  3. FLUOROURACIL [Concomitant]
     Indication: HEAD AND NECK CANCER
  4. NEUPOGEN [Concomitant]

REACTIONS (1)
  - NEUTROPENIA [None]
